FAERS Safety Report 25163128 (Version 1)
Quarter: 2025Q2

REPORT INFORMATION
  Report Type: Spontaneous
  Country: CN (occurrence: CN)
  Receive Date: 20250404
  Receipt Date: 20250404
  Transmission Date: 20250717
  Serious: Yes (Hospitalization)
  Sender: BAYER
  Company Number: CN-BAYER-2025A044613

PATIENT
  Age: 79 Year
  Sex: Male

DRUGS (2)
  1. GLUCOBAY [Suspect]
     Active Substance: ACARBOSE
     Indication: Type 2 diabetes mellitus
     Dosage: 1 DF, TID
     Route: 048
     Dates: start: 20230301, end: 20250303
  2. METFORMIN [Concomitant]
     Active Substance: METFORMIN HYDROCHLORIDE
     Indication: Type 2 diabetes mellitus
     Route: 048

REACTIONS (4)
  - Decreased appetite [None]
  - Asthenia [None]
  - Abdominal distension [Recovering/Resolving]
  - Flatulence [None]

NARRATIVE: CASE EVENT DATE: 20240101
